FAERS Safety Report 7423596-4 (Version None)
Quarter: 2011Q2

REPORT INFORMATION
  Report Type: 
  Country: None (occurrence: None)
  Receive Date: 20110419
  Receipt Date: 20110414
  Transmission Date: 20111010
  Serious: Yes (Life-Threatening, Hospitalization)
  Sender: FDA-Public Use
  Company Number: PHHY2011FR31791

PATIENT
  Sex: Male

DRUGS (2)
  1. TRILEPTAL [Suspect]
     Indication: PARTIAL SEIZURES
     Dosage: 300 MG, UNK
  2. TRILEPTAL [Suspect]
     Dosage: 80 DF, ONCE/SINGLE

REACTIONS (6)
  - COMA [None]
  - TOXICITY TO VARIOUS AGENTS [None]
  - LOSS OF CONSCIOUSNESS [None]
  - CONVULSION [None]
  - VOMITING [None]
  - INTENTIONAL OVERDOSE [None]
